FAERS Safety Report 23788921 (Version 2)
Quarter: 2024Q2

REPORT INFORMATION
  Report Type: Spontaneous
  Country: US (occurrence: US)
  Receive Date: 20240426
  Receipt Date: 20240606
  Transmission Date: 20240716
  Serious: Yes (Hospitalization, Other)
  Sender: FDA-Public Use
  Company Number: US-Calliditas-2024CAL00629

PATIENT
  Age: 31 Year
  Sex: Male
  Weight: 263 kg

DRUGS (3)
  1. TARPEYO [Suspect]
     Active Substance: BUDESONIDE
     Indication: IgA nephropathy
     Dosage: 16MG (4MG CAPSULES) ONCE DAILY
     Route: 048
     Dates: start: 20231109, end: 20240401
  2. CLONIDINE [Concomitant]
     Active Substance: CLONIDINE
  3. FARXIGA [Concomitant]
     Active Substance: DAPAGLIFLOZIN PROPANEDIOL

REACTIONS (3)
  - Hospitalisation [Unknown]
  - End stage renal disease [Unknown]
  - Dialysis [Unknown]

NARRATIVE: CASE EVENT DATE: 20240401
